FAERS Safety Report 5082621-9 (Version None)
Quarter: 2006Q3

REPORT INFORMATION
  Report Type: 
  Country: None (occurrence: None)
  Receive Date: 20060811
  Receipt Date: 20060806
  Transmission Date: 20061208
  Serious: Yes (Other)
  Sender: FDA-Public Use
  Company Number: 2006-08-0521

PATIENT
  Age: 56 Year
  Sex: Male

DRUGS (7)
  1. PEG-INTRON [Suspect]
     Indication: HEPATITIS C
     Dosage: SUBCUTANEOUS
     Route: 058
     Dates: start: 20060316, end: 20060701
  2. RIBASPHERE [Suspect]
     Indication: HEPATITIS C
     Dosage: ORAL
     Route: 048
     Dates: start: 20060316, end: 20060701
  3. GEMFIBROZIL [Concomitant]
  4. GLYBURIDE [Concomitant]
  5. NPH INSULIN PORK [Concomitant]
  6. LISINOPRIL [Concomitant]
  7. SYNTHROID [Concomitant]

REACTIONS (3)
  - CONDITION AGGRAVATED [None]
  - GOITRE [None]
  - HYPOTHYROIDISM [None]
